FAERS Safety Report 5247740-2 (Version None)
Quarter: 2007Q1

REPORT INFORMATION
  Report Type: 
  Country: None (occurrence: None)
  Receive Date: 20070227
  Receipt Date: 20070215
  Transmission Date: 20070707
  Serious: Yes (Other)
  Sender: FDA-Public Use
  Company Number: PHEH2007US02131

PATIENT

DRUGS (1)
  1. EXJADE [Suspect]
     Route: 048

REACTIONS (3)
  - CARDIAC SIDEROSIS [None]
  - HAEMOSIDEROSIS [None]
  - SERUM FERRITIN INCREASED [None]
